FAERS Safety Report 5484514-1 (Version None)
Quarter: 2007Q4

REPORT INFORMATION
  Report Type: 
  Country: None (occurrence: None)
  Receive Date: 20071012
  Receipt Date: 20071003
  Transmission Date: 20080405
  Serious: Yes (Hospitalization, Disabling, Other)
  Sender: FDA-Public Use
  Company Number: CA-PFIZER INC-2007077159

PATIENT
  Sex: Male
  Weight: 94.4 kg

DRUGS (4)
  1. RESCRIPTOR [Suspect]
     Indication: HIV INFECTION
     Route: 048
  2. ABACAVIR SULFATE [Concomitant]
     Route: 048
  3. LAMIVUDINE [Concomitant]
     Route: 048
  4. FACTOR VIII [Concomitant]

REACTIONS (2)
  - BONE DISORDER [None]
  - PATHOLOGICAL FRACTURE [None]
